FAERS Safety Report 4308632-6 (Version None)
Quarter: 2004Q1

REPORT INFORMATION
  Report Type: 
  Country: None (occurrence: None)
  Receive Date: 20040226
  Receipt Date: 20030723
  Transmission Date: 20041129
  Serious: Yes (Hospitalization)
  Sender: FDA-Public Use
  Company Number: 201672

PATIENT
  Age: 9 Year
  Sex: Male

DRUGS (1)
  1. NUTROPIN [Suspect]
     Indication: GROWTH HORMONE DEFICIENCY
     Dosage: 1 MG, QD, SUBCUTANEOUS
     Route: 058
     Dates: start: 20030626, end: 20030627

REACTIONS (1)
  - PANCREATITIS [None]
